FAERS Safety Report 10083361 (Version 1)
Quarter: 2014Q2

REPORT INFORMATION
  Report Type: Report from Study
  Country: CA (occurrence: CA)
  Receive Date: 20140417
  Receipt Date: 20140417
  Transmission Date: 20141212
  Serious: Yes (Hospitalization)
  Sender: FDA-Public Use
  Company Number: CA-JNJFOC-20140408234

PATIENT
  Age: 61 Year
  Sex: Male
  Weight: 64 kg

DRUGS (8)
  1. REMICADE [Suspect]
     Indication: COLITIS ULCERATIVE
     Route: 042
  2. REMICADE [Suspect]
     Indication: COLITIS ULCERATIVE
     Route: 042
     Dates: start: 2014
  3. REMICADE [Suspect]
     Indication: COLITIS ULCERATIVE
     Route: 042
     Dates: start: 2011
  4. PREDNISONE [Concomitant]
     Route: 065
  5. TRAVATAN [Concomitant]
     Route: 047
  6. COUMADIN [Concomitant]
     Route: 065
  7. COUMADIN [Concomitant]
     Route: 065
  8. MYCOPHENOLATE SODIUM [Concomitant]
     Route: 065

REACTIONS (3)
  - Swollen tongue [Recovered/Resolved]
  - Wound [Recovered/Resolved]
  - Tongue injury [Recovered/Resolved]
